FAERS Safety Report 8185847-0 (Version None)
Quarter: 2012Q1

REPORT INFORMATION
  Report Type: 
  Country: None (occurrence: None)
  Receive Date: 20120305
  Receipt Date: 20120222
  Transmission Date: 20120608
  Serious: Yes (Hospitalization)
  Sender: FDA-Public Use
  Company Number: IT-ASTRAZENECA-2012SE11937

PATIENT
  Age: 28413 Day
  Sex: Female

DRUGS (7)
  1. ROCALTROL [Concomitant]
     Route: 065
  2. ATENOLOL [Concomitant]
     Route: 065
  3. DIDROGYL (25-HYDROXYCHOLECALCIFEROL) [Concomitant]
     Route: 065
  4. SEROQUEL [Suspect]
     Indication: SENILE PSYCHOSIS
     Route: 048
     Dates: start: 20120128, end: 20120128
  5. SEROQUEL [Suspect]
     Route: 048
     Dates: start: 20120129, end: 20120129
  6. SEROQUEL [Suspect]
     Route: 048
     Dates: start: 20120130, end: 20120204
  7. ESCITALOPRAM OXALATE [Concomitant]
     Route: 065

REACTIONS (2)
  - HEAD INJURY [None]
  - PRESYNCOPE [None]
